FAERS Safety Report 25088627 (Version 2)
Quarter: 2025Q2

REPORT INFORMATION
  Report Type: Spontaneous
  Country: AR (occurrence: AR)
  Receive Date: 20250318
  Receipt Date: 20250408
  Transmission Date: 20250716
  Serious: Yes (Other)
  Sender: MYLAN
  Company Number: AR-MYLANLABS-2025M1022503

PATIENT
  Age: 14 Year
  Sex: Male

DRUGS (1)
  1. CLOZAPINE [Suspect]
     Active Substance: CLOZAPINE
     Indication: Product used for unknown indication

REACTIONS (4)
  - Neutropenia [Recovered/Resolved]
  - Leukocytosis [Unknown]
  - Neutrophil count increased [Unknown]
  - Off label use [Unknown]

NARRATIVE: CASE EVENT DATE: 20250201
